FAERS Safety Report 4322021-X (Version None)
Quarter: 2004Q1

REPORT INFORMATION
  Report Type: 
  Country: None (occurrence: None)
  Receive Date: 20040319
  Receipt Date: 20031204
  Transmission Date: 20041129
  Serious: No
  Sender: FDA-Public Use
  Company Number: 200312542

PATIENT
  Sex: Male

DRUGS (2)
  1. LUMIGAN [Suspect]
     Indication: GLAUCOMA
     Dosage: 1 DROP QD EYE
  2. OCUPRESS [Concomitant]

REACTIONS (3)
  - GROWTH OF EYELASHES [None]
  - HAIR COLOUR CHANGES [None]
  - SKIN DISORDER [None]
